FAERS Safety Report 4354147-9 (Version None)
Quarter: 2004Q2

REPORT INFORMATION
  Report Type: 
  Country: None (occurrence: None)
  Receive Date: 20040503
  Receipt Date: 20040420
  Transmission Date: 20050107
  Serious: No
  Sender: FDA-Public Use
  Company Number: 2004-115417-NL

PATIENT
  Age: 53 Year
  Sex: Male

DRUGS (18)
  1. MIRTAZAPINE [Suspect]
     Dosage: 30 MG; ORAL
     Route: 048
  2. RABEPRAZOLE SODIUM [Suspect]
     Dosage: 20 MG; ORAL
     Route: 048
  3. AMLODIPINE [Concomitant]
  4. ASPIRIN [Concomitant]
  5. CALCIUM CARBONATE [Concomitant]
  6. CHLORAL HYDRATE [Concomitant]
  7. DOMPERIDONE [Concomitant]
  8. EPOETIN ALFA [Concomitant]
  9. FUROSEMIDE [Concomitant]
  10. LEVOTHYROXINE [Concomitant]
  11. LOSARTAN POTASSIUM [Concomitant]
  12. METOPROLOL [Concomitant]
  13. ISOPHANE INSULIN [Concomitant]
  14. QYININE SULFATE [Concomitant]
  15. RAMIPRIL [Concomitant]
  16. REPLAVITE [Concomitant]
  17. TERAZOSIN HCL [Concomitant]
  18. SACCHARATED IRON OXIDE [Concomitant]

REACTIONS (2)
  - HEPATOTOXICITY [None]
  - PRURITUS [None]
